FAERS Safety Report 7425224-0 (Version None)
Quarter: 2011Q2

REPORT INFORMATION
  Report Type: 
  Country: None (occurrence: None)
  Receive Date: 20110413
  Receipt Date: 20110330
  Transmission Date: 20111010
  Serious: Yes (Other)
  Sender: FDA-Public Use
  Company Number: JPI-P-014388

PATIENT
  Age: 51 Year
  Sex: Female
  Weight: 129.7287 kg

DRUGS (5)
  1. XYREM [Suspect]
     Indication: APNOEA
  2. XYREM [Suspect]
     Indication: APNOEA
     Dosage: D,ORAL,9 GM(4.5 GM, 2 IN 1 D,
     Route: 048
     Dates: start: 20060801, end: 20110101
  3. POTASSIUM [Concomitant]
  4. METFORMIN HYDROCHLORIDE [Concomitant]
  5. FUROSEMIDE [Concomitant]

REACTIONS (3)
  - FALL [None]
  - MENISCUS LESION [None]
  - LIGAMENT RUPTURE [None]
